FAERS Safety Report 22619353 (Version 2)
Quarter: 2024Q3

REPORT INFORMATION
  Report Type: Spontaneous
  Country: US (occurrence: US)
  Receive Date: 20230620
  Receipt Date: 20240711
  Transmission Date: 20241017
  Serious: No
  Sender: PIERRE FABRE MEDICAMENT
  Company Number: US-PFM-2023-01581

PATIENT
  Sex: Female
  Weight: 10.086 kg

DRUGS (1)
  1. HEMANGEOL [Suspect]
     Active Substance: PROPRANOLOL HYDROCHLORIDE
     Indication: Haemangioma
     Dosage: 2.3 ML, BID (2/DAY)
     Route: 048

REACTIONS (3)
  - Gastroenteritis viral [Unknown]
  - Rash [Recovering/Resolving]
  - Hypersensitivity [Unknown]
